FAERS Safety Report 15357401 (Version 1)
Quarter: 2018Q3

REPORT INFORMATION
  Report Type: Spontaneous
  Country: US (occurrence: US)
  Receive Date: 20180830
  Receipt Date: 20180830
  Transmission Date: 20181010
  Serious: No
  Sender: FDA-Public Use
  Company Number: None

PATIENT
  Age: 68 Year
  Sex: Female

DRUGS (1)
  1. SUTENT [Suspect]
     Active Substance: SUNITINIB MALATE
     Indication: RENAL CANCER
     Dosage: 50MG  ONCE  DAILY FOR 2 WEEKS IN THEN 1 WEEK OFF ORAL
     Route: 048
     Dates: start: 20180613

REACTIONS (3)
  - Dry mouth [None]
  - Eating disorder [None]
  - Vomiting [None]

NARRATIVE: CASE EVENT DATE: 20180615
